FAERS Safety Report 13724979 (Version 1)
Quarter: 2017Q3

REPORT INFORMATION
  Report Type: Report from Study
  Country: US (occurrence: US)
  Receive Date: 20170706
  Receipt Date: 20170706
  Transmission Date: 20171127
  Serious: Yes (Hospitalization)
  Sender: FDA-Public Use
  Company Number: US-VIFOR (INTERNATIONAL) INC.-VIT-2017-07080

PATIENT
  Age: 92 Year
  Sex: Male

DRUGS (16)
  1. ALPHAGAN P [Concomitant]
     Active Substance: BRIMONIDINE TARTRATE
  2. ISOSORBIDE. [Concomitant]
     Active Substance: ISOSORBIDE
  3. VELTASSA [Suspect]
     Active Substance: PATIROMER
     Indication: HYPERKALAEMIA
     Route: 048
     Dates: start: 20160928
  4. SODIUM BICARBONATE. [Concomitant]
     Active Substance: SODIUM BICARBONATE
  5. FLOMAX [Concomitant]
     Active Substance: TAMSULOSIN HYDROCHLORIDE
  6. CARVEDILOL. [Concomitant]
     Active Substance: CARVEDILOL
  7. FINASTERIDE. [Concomitant]
     Active Substance: FINASTERIDE
  8. OMEPRAZOLE. [Concomitant]
     Active Substance: OMEPRAZOLE
  9. VITAMIN C [Concomitant]
     Active Substance: ASCORBIC ACID
  10. PROAIR AER [Concomitant]
  11. COLACE [Concomitant]
     Active Substance: DOCUSATE SODIUM
  12. FUROSEMIDE. [Concomitant]
     Active Substance: FUROSEMIDE
  13. TAMSULOSIN [Concomitant]
     Active Substance: TAMSULOSIN
  14. COQ10 [Concomitant]
     Active Substance: UBIDECARENONE
  15. LUMIGAN [Concomitant]
     Active Substance: BIMATOPROST
  16. WARFARIN [Concomitant]
     Active Substance: WARFARIN

REACTIONS (1)
  - Cardiac pacemaker insertion [Recovered/Resolved]

NARRATIVE: CASE EVENT DATE: 20170608
